FAERS Safety Report 5374102-X (Version None)
Quarter: 2007Q2

REPORT INFORMATION
  Report Type: 
  Country: None (occurrence: None)
  Receive Date: 20070627
  Receipt Date: 20070611
  Transmission Date: 20071010
  Serious: Yes (Life-Threatening)
  Sender: FDA-Public Use
  Company Number: ENT-2007-0075

PATIENT
  Age: 76 Year
  Sex: Male

DRUGS (3)
  1. COMTAN [Suspect]
     Indication: PARKINSON'S DISEASE
     Dosage: 800 MG, ORAL
     Route: 048
     Dates: start: 20020724
  2. IDALPREM [Suspect]
     Dosage: 1 MG, ORAL
     Route: 048
     Dates: start: 20030422
  3. NEUPRO [Suspect]
     Indication: PARKINSON'S DISEASE
     Dosage: 2 MG, TRANSDERMAL
     Route: 062
     Dates: start: 20070326, end: 20070402

REACTIONS (2)
  - DRUG INTERACTION [None]
  - HALLUCINATION [None]
